FAERS Safety Report 13407042 (Version 7)
Quarter: 2017Q3

REPORT INFORMATION
  Report Type: Report from Study
  Country: US (occurrence: US)
  Receive Date: 20170405
  Receipt Date: 20170823
  Transmission Date: 20171127
  Serious: Yes (Other)
  Sender: FDA-Public Use
  Company Number: PHEH2017US009904

PATIENT
  Age: 68 Year
  Sex: Female

DRUGS (8)
  1. LIDEX [Concomitant]
     Active Substance: FLUOCINONIDE
     Indication: PRODUCT USED FOR UNKNOWN INDICATION
     Dosage: UNK UNK, PRN
     Route: 065
  2. FOLIC ACID. [Concomitant]
     Active Substance: FOLIC ACID
     Indication: PRODUCT USED FOR UNKNOWN INDICATION
     Dosage: 1 MG, QD
     Route: 065
  3. COSENTYX [Suspect]
     Active Substance: SECUKINUMAB
     Indication: PSORIASIS
     Dosage: UNK
     Route: 058
     Dates: start: 20160330, end: 20170410
  4. METHOTREXATE. [Suspect]
     Active Substance: METHOTREXATE
     Dosage: 12.5 MG, QW
     Route: 065
     Dates: start: 20141202
  5. METHOTREXATE. [Suspect]
     Active Substance: METHOTREXATE
     Dosage: 15 MG (6 PILLS), QW
     Route: 065
     Dates: start: 20140917
  6. METHOTREXATE. [Suspect]
     Active Substance: METHOTREXATE
     Dosage: 10 MG, QW
     Route: 065
     Dates: start: 20141022
  7. METOPROLOL. [Suspect]
     Active Substance: METOPROLOL
     Indication: PRODUCT USED FOR UNKNOWN INDICATION
     Dosage: UNK
     Route: 065
  8. METHOTREXATE. [Suspect]
     Active Substance: METHOTREXATE
     Indication: PSORIASIS
     Dosage: 7.5 MG, UNK
     Route: 065
     Dates: start: 20140819

REACTIONS (22)
  - Actinic keratosis [Unknown]
  - Alanine aminotransferase increased [Unknown]
  - Psoriasis [Unknown]
  - Rash [Unknown]
  - Diarrhoea [Unknown]
  - Abdominal pain [Unknown]
  - Skin irritation [Unknown]
  - Alopecia [Unknown]
  - Neoplasm [Unknown]
  - Skin lesion [Unknown]
  - Melanocytic naevus [Unknown]
  - Pruritus [Recovering/Resolving]
  - Dry skin [Unknown]
  - Impaired healing [Unknown]
  - Inflammatory bowel disease [Unknown]
  - Breast enlargement [Unknown]
  - Skin exfoliation [Unknown]
  - Erythema [Unknown]
  - Skin cancer [Not Recovered/Not Resolved]
  - Gastrointestinal disorder [Unknown]
  - Influenza [Unknown]
  - Therapy non-responder [Unknown]

NARRATIVE: CASE EVENT DATE: 20141202
